FAERS Safety Report 22707389 (Version 3)
Quarter: 2023Q4

REPORT INFORMATION
  Report Type: Spontaneous
  Country: US (occurrence: US)
  Receive Date: 20230714
  Receipt Date: 20231009
  Transmission Date: 20240109
  Serious: No
  Sender: FDA-Public Use
  Company Number: US-ELI_LILLY_AND_COMPANY-US202307007787

PATIENT
  Age: 77 Year
  Sex: Female
  Weight: 62.404 kg

DRUGS (13)
  1. TADALAFIL [Suspect]
     Active Substance: TADALAFIL
     Indication: Pulmonary arterial hypertension
     Dosage: 20 MG, DAILY
     Route: 048
     Dates: start: 20221122
  2. TADALAFIL [Suspect]
     Active Substance: TADALAFIL
     Dosage: 40 MG, DAILY
     Route: 048
  3. TYVASO [Suspect]
     Active Substance: TREPROSTINIL
     Indication: Pulmonary arterial hypertension
     Dosage: 64 UG, QID
     Route: 065
     Dates: start: 20220922
  4. OPSUMIT [Suspect]
     Active Substance: MACITENTAN
     Indication: Pulmonary hypertension
     Dosage: 10 MG, DAILY
     Route: 048
     Dates: start: 20230312, end: 20230612
  5. PREDNISOLONE [Suspect]
     Active Substance: PREDNISOLONE
     Indication: Sarcoidosis
     Dosage: 40 MG
     Route: 048
  6. PREDNISOLONE [Suspect]
     Active Substance: PREDNISOLONE
     Dosage: 20 MG, BID
     Route: 048
     Dates: start: 20230312, end: 20230610
  7. PREDNISOLONE [Suspect]
     Active Substance: PREDNISOLONE
     Dosage: 10 MG, BID
     Route: 048
     Dates: start: 20230508
  8. PREDNISOLONE [Suspect]
     Active Substance: PREDNISOLONE
     Dosage: 5 MG, OTHER, EVERY OTHER DAY
     Route: 048
  9. PREDNISOLONE [Suspect]
     Active Substance: PREDNISOLONE
     Dosage: 2.5 MG, OTHER, EVERY OTHER FOR 10 DAYS
     Route: 048
     Dates: end: 20230622
  10. GLUCOPHAGE XR [Concomitant]
     Active Substance: METFORMIN HYDROCHLORIDE
     Indication: Product used for unknown indication
     Dosage: UNK, DAILY
     Route: 048
     Dates: start: 20221221
  11. CALCIUM CARBONATE\VITAMIN D [Concomitant]
     Active Substance: CALCIUM CARBONATE\VITAMIN D
     Indication: Product used for unknown indication
     Dosage: 125 MG, 600 - 125MG
     Route: 048
  12. COMBIGAN [Concomitant]
     Active Substance: BRIMONIDINE TARTRATE\TIMOLOL MALEATE
     Indication: Product used for unknown indication
     Dosage: UNK, BID, ONE DROP IN THE MORNING AND ONE IN THE EVENING
  13. CHOLECALCIFEROL [Concomitant]
     Active Substance: CHOLECALCIFEROL
     Indication: Product used for unknown indication
     Dosage: 50 UG, DAILY
     Route: 048

REACTIONS (30)
  - Lymphadenopathy [Recovered/Resolved]
  - Sarcoidosis [Unknown]
  - Hyperglycaemia [Unknown]
  - Weight increased [Not Recovered/Not Resolved]
  - Ocular icterus [Unknown]
  - Skin depigmentation [Unknown]
  - Ear swelling [Unknown]
  - Respiratory tract congestion [Unknown]
  - Swelling [Recovering/Resolving]
  - Sputum discoloured [Unknown]
  - Oedema [Unknown]
  - Left ventricular end-diastolic pressure decreased [Recovered/Resolved]
  - Pulmonary arterial wedge pressure decreased [Unknown]
  - Angiotensin converting enzyme increased [Unknown]
  - Red blood cell sedimentation rate increased [Unknown]
  - Wheezing [Unknown]
  - Walking distance test abnormal [Unknown]
  - Rales [Unknown]
  - Pulmonary function test abnormal [Unknown]
  - Diastolic dysfunction [Unknown]
  - Left atrial dilatation [Unknown]
  - Right atrial dilatation [Unknown]
  - Sputum increased [Unknown]
  - Cough [Unknown]
  - Oedema peripheral [Unknown]
  - Myalgia [Unknown]
  - Peripheral swelling [Not Recovered/Not Resolved]
  - Fatigue [Unknown]
  - Dyspnoea [Unknown]
  - Pain in extremity [Unknown]

NARRATIVE: CASE EVENT DATE: 20221213
